FAERS Safety Report 5628551-2 (Version None)
Quarter: 2008Q1

REPORT INFORMATION
  Report Type: 
  Country: None (occurrence: None)
  Receive Date: 20080215
  Receipt Date: 20080207
  Transmission Date: 20080703
  Serious: Yes (Disabling, Other)
  Sender: FDA-Public Use
  Company Number: US-MERCK-0706USA00955

PATIENT
  Age: 61 Year
  Sex: Female

DRUGS (1)
  1. FOSAMAX [Suspect]
     Indication: OSTEOPOROSIS
     Route: 048
     Dates: start: 19990701, end: 20060501

REACTIONS (5)
  - CARDIAC DISORDER [None]
  - OSTEOMYELITIS [None]
  - RESORPTION BONE INCREASED [None]
  - SLEEP APNOEA SYNDROME [None]
  - TOOTH LOSS [None]
